FAERS Safety Report 6967224 (Version 1)
Quarter: 2020Q3

REPORT INFORMATION
  Report Type: Report from Study
  Country: US (occurrence: US)
  Receive Date: 20090413
  Receipt Date: 20090413
  Transmission Date: 20201105
  Serious: Yes (Hospitalization)
  Sender: FDA-Public Use
  Company Number: US-ROCHE-625505

PATIENT
  Age: 83 Year
  Sex: Female

DRUGS (5)
  1. VITAMIN [Concomitant]
  2. IBANDRONIC ACID. [Suspect]
     Active Substance: IBANDRONIC ACID
     Indication: BONE DISORDER
     Dosage: MISSED THE DOSE ON 23 MARCH 2009
     Route: 065
     Dates: start: 200803
  3. CHOLESTEROL [Concomitant]
     Active Substance: CHOLESTEROL
  4. ARIMIDEX [Concomitant]
     Active Substance: ANASTROZOLE
  5. CALCIUM [Concomitant]
     Active Substance: CALCIUM

REACTIONS (3)
  - Cardiac failure congestive [Recovering/Resolving]
  - Product dose omission issue [None]
  - No adverse event [None]

NARRATIVE: CASE EVENT DATE: 20090323
